FAERS Safety Report 6201304-2 (Version None)
Quarter: 2009Q2

REPORT INFORMATION
  Report Type: 
  Country: None (occurrence: None)
  Receive Date: 20090526
  Receipt Date: 20090515
  Transmission Date: 20091009
  Serious: Yes (Hospitalization)
  Sender: FDA-Public Use
  Company Number: PHHY2009GR18641

PATIENT
  Age: 38 Year
  Sex: Female

DRUGS (5)
  1. EXJADE [Suspect]
     Indication: THALASSAEMIA BETA
     Dosage: 1250 MG, QD
     Route: 048
     Dates: start: 20090228, end: 20090307
  2. EXJADE [Suspect]
     Indication: HAEMOCHROMATOSIS
  3. DIVINA [Concomitant]
     Dosage: 1 DF, 21 DAYS OF EVERY 28 DAYS
     Route: 048
  4. TRIMEBUTINE ^IBUTIN^ [Concomitant]
     Dosage: 1 DF, BID
     Route: 048
  5. DILATREND [Concomitant]
     Dosage: 0.5 DF, TID
     Route: 048

REACTIONS (1)
  - ERYTHEMA MULTIFORME [None]
